FAERS Safety Report 5269533-2 (Version None)
Quarter: 2007Q1

REPORT INFORMATION
  Report Type: 
  Country: None (occurrence: None)
  Receive Date: 20070320
  Receipt Date: 20070307
  Transmission Date: 20070707
  Serious: Yes (Hospitalization)
  Sender: FDA-Public Use
  Company Number: PHNU2007DE01103

PATIENT
  Sex: Male

DRUGS (6)
  1. LIORESAL [Suspect]
     Indication: MUSCLE SPASTICITY
     Dosage: 5 MG, TID
     Route: 048
  2. LIORESAL [Suspect]
     Dosage: 10 MG, TID
     Route: 048
  3. FURO ^ABZ^ [Concomitant]
     Dosage: 120 MG/DAY
  4. ACETYLSALICYLIC ACID SRT [Concomitant]
     Indication: CORONARY ARTERY DISEASE
     Dosage: 100 MG/DAY
     Route: 048
  5. SIRDALUD [Concomitant]
     Indication: MUSCLE SPASTICITY
     Dosage: 4 MG/DAY
  6. DIGIMERCK [Concomitant]

REACTIONS (4)
  - DECUBITUS ULCER [None]
  - FATIGUE [None]
  - MUSCLE SPASTICITY [None]
  - OEDEMA [None]
